FAERS Safety Report 15616493 (Version 2)
Quarter: 2018Q4

REPORT INFORMATION
  Report Type: Report from Study
  Country: IT (occurrence: IT)
  Receive Date: 20181114
  Receipt Date: 20181114
  Transmission Date: 20190205
  Serious: Yes (Hospitalization, Other)
  Sender: FDA-Public Use
  Company Number: IT-BAYER-2018-205330

PATIENT
  Age: 56 Year
  Sex: Female

DRUGS (7)
  1. PARACETAMOL W/TRAMADOL HYDROCHLORIDE [Suspect]
     Active Substance: ACETAMINOPHEN\TRAMADOL HYDROCHLORIDE
     Indication: INTENTIONAL SELF-INJURY
  2. VENLAFAXINE [Suspect]
     Active Substance: VENLAFAXINE HYDROCHLORIDE
     Indication: INTENTIONAL SELF-INJURY
     Dosage: 1.05 G, UNK
     Route: 048
     Dates: start: 20181020, end: 20181020
  3. XANAX [Suspect]
     Active Substance: ALPRAZOLAM
     Indication: INTENTIONAL SELF-INJURY
  4. ACETYLSALICYLIC ACID [Suspect]
     Active Substance: ASPIRIN
     Dosage: 3 G, UNK
     Route: 048
     Dates: start: 20181020, end: 20181020
  5. TRAMADOL HYDROCHLORIDE. [Suspect]
     Active Substance: TRAMADOL HYDROCHLORIDE
     Indication: INTENTIONAL SELF-INJURY
     Dosage: 2 G, UNK
     Route: 048
     Dates: start: 20181020, end: 20181020
  6. XANAX [Suspect]
     Active Substance: ALPRAZOLAM
     Indication: INTENTIONAL SELF-INJURY
     Dosage: 5 MG, UNK
     Route: 048
     Dates: start: 20181020, end: 20181020
  7. QUETIAPINE. [Suspect]
     Active Substance: QUETIAPINE
     Indication: INTENTIONAL SELF-INJURY
     Dosage: 750 MG, UNK
     Route: 048
     Dates: start: 20181020, end: 20181020

REACTIONS (4)
  - Intentional self-injury [Not Recovered/Not Resolved]
  - Drug abuse [None]
  - Toxicity to various agents [Not Recovered/Not Resolved]
  - Sopor [Not Recovered/Not Resolved]

NARRATIVE: CASE EVENT DATE: 20181020
